APPROVED DRUG PRODUCT: SYNALGOS-DC
Active Ingredient: ASPIRIN; CAFFEINE; DIHYDROCODEINE BITARTRATE
Strength: 356.4MG;30MG;16MG
Dosage Form/Route: CAPSULE;ORAL
Application: N011483 | Product #004
Applicant: SUN PHARMACEUTICAL INDUSTRIES INC
Approved: Sep 6, 1983 | RLD: Yes | RS: No | Type: DISCN